FAERS Safety Report 12921353 (Version 3)
Quarter: 2017Q1

REPORT INFORMATION
  Report Type: Spontaneous
  Country: PT (occurrence: PT)
  Receive Date: 20161108
  Receipt Date: 20170208
  Transmission Date: 20170428
  Serious: Yes (Congenital Anomaly)
  Sender: FDA-Public Use
  Company Number: PT-JNJFOC-20161027335

PATIENT
  Age: 4 Month

DRUGS (1)
  1. STELARA [Suspect]
     Active Substance: USTEKINUMAB
     Indication: PSORIASIS
     Route: 065

REACTIONS (3)
  - Cardiac haemangioma benign [Recovering/Resolving]
  - Vascular malformation [Unknown]
  - Foetal exposure during pregnancy [Recovered/Resolved]
